FAERS Safety Report 5861691-1 (Version None)
Quarter: 2008Q3

REPORT INFORMATION
  Report Type: 
  Country: None (occurrence: None)
  Receive Date: 20080827
  Receipt Date: 20080624
  Transmission Date: 20090109
  Serious: No
  Sender: FDA-Public Use
  Company Number: US-ABBOTT-08P-163-0459178-00

PATIENT
  Sex: Male
  Weight: 88.53 kg

DRUGS (7)
  1. COATED PDS [Suspect]
     Indication: HIGH DENSITY LIPOPROTEIN DECREASED
     Route: 048
     Dates: start: 20060101
  2. COATED PDS [Suspect]
     Indication: LOW DENSITY LIPOPROTEIN INCREASED
     Route: 048
  3. COATED PDS [Suspect]
     Indication: BLOOD TRIGLYCERIDES INCREASED
  4. BETASERON [Concomitant]
     Indication: MULTIPLE SCLEROSIS
     Route: 058
     Dates: start: 19940101
  5. BACLOFEN [Concomitant]
     Indication: MULTIPLE SCLEROSIS
     Route: 048
     Dates: start: 19940101
  6. MODAFINIL [Concomitant]
     Indication: MULTIPLE SCLEROSIS
     Route: 048
     Dates: start: 19940101
  7. CALCIUM [Concomitant]
     Indication: OSTEOPOROSIS
     Route: 048
     Dates: start: 19940101

REACTIONS (5)
  - BLOOD GLUCOSE INCREASED [None]
  - DIARRHOEA [None]
  - NAUSEA [None]
  - URINARY TRACT INFECTION [None]
  - VOMITING [None]
